FAERS Safety Report 17724218 (Version 1)
Quarter: 2020Q2

REPORT INFORMATION
  Report Type: Report from Study
  Country: JP (occurrence: JP)
  Receive Date: 20200429
  Receipt Date: 20200429
  Transmission Date: 20200714
  Serious: Yes (Death)
  Sender: FDA-Public Use
  Company Number: JP-PFIZER INC-2013357454

PATIENT
  Age: 75 Year
  Sex: Male
  Weight: 63.4 kg

DRUGS (20)
  1. CINAL [Concomitant]
     Indication: HEREDITARY NEUROPATHIC AMYLOIDOSIS
     Dosage: 2 G, 3X/DAY
     Route: 048
  2. GASMOTIN [Concomitant]
     Active Substance: MOSAPRIDE CITRATE
     Indication: HEREDITARY NEUROPATHIC AMYLOIDOSIS
     Dosage: 5 MG, 3X/DAY
     Route: 048
     Dates: start: 20130326
  3. MOHRUS [Concomitant]
     Active Substance: KETOPROFEN
     Indication: HEREDITARY NEUROPATHIC AMYLOIDOSIS
     Dosage: UNK
     Route: 062
     Dates: start: 20120224
  4. BISOLVON [Concomitant]
     Active Substance: BROMHEXINE HYDROCHLORIDE
     Indication: HEREDITARY NEUROPATHIC AMYLOIDOSIS
     Dosage: 5 ML, 3X/DAY
     Route: 048
     Dates: start: 20120703
  5. TAFAMIDIS MEGLUMINE [Suspect]
     Active Substance: TAFAMIDIS MEGLUMINE
     Indication: HEREDITARY NEUROPATHIC AMYLOIDOSIS
     Dosage: 20 MG, 1X/DAY
     Route: 048
     Dates: start: 20120229, end: 20131209
  6. EVIPROSTAT [Concomitant]
     Active Substance: CHIMAPHILA UMBELLATA\MANGANESE CHLORIDE\POPULUS TREMULOIDES\SODIUM TAUROCHOLATE
     Indication: HEREDITARY NEUROPATHIC AMYLOIDOSIS
     Dosage: 1 DF, 2X/DAY
     Route: 048
  7. ALINAMIN F [Concomitant]
     Active Substance: FURSULTIAMINE HYDROCHLORIDE
     Indication: HEREDITARY NEUROPATHIC AMYLOIDOSIS
     Dosage: 25 MG, 3X/DAY
     Route: 048
  8. METHYCOOL [Concomitant]
     Active Substance: METHYLCOBALAMIN
     Indication: HEREDITARY NEUROPATHIC AMYLOIDOSIS
     Dosage: 500 UG, 3X/DAY
     Route: 048
  9. URIEF [Concomitant]
     Active Substance: SILODOSIN
     Indication: HEREDITARY NEUROPATHIC AMYLOIDOSIS
     Dosage: 4 MG, 2X/DAY
     Route: 048
  10. SINGULAIR [Concomitant]
     Active Substance: MONTELUKAST SODIUM
     Indication: HEREDITARY NEUROPATHIC AMYLOIDOSIS
     Dosage: 10 MG, 1X/DAY
     Route: 048
  11. LANSOPRAZOL [Concomitant]
     Active Substance: LANSOPRAZOLE
     Indication: HEREDITARY NEUROPATHIC AMYLOIDOSIS
     Dosage: 30 MG, 1X/DAY
     Route: 048
  12. BISCOPOR [Concomitant]
     Indication: TINEA PEDIS
     Dosage: UNK
     Route: 062
     Dates: start: 20130702
  13. REBAMIPIDE [Concomitant]
     Active Substance: REBAMIPIDE
     Indication: CHRONIC GASTRITIS
     Dosage: 100 MG, 3X/DAY
     Route: 048
     Dates: start: 20130326
  14. KARY UNI [Concomitant]
     Active Substance: PIRENOXINE
     Indication: CATARACT
     Dosage: UNK
     Route: 047
     Dates: start: 20130823
  15. FUROSEMIDE. [Concomitant]
     Active Substance: FUROSEMIDE
     Indication: HEREDITARY NEUROPATHIC AMYLOIDOSIS
     Dosage: 20 MG, 1X/DAY
     Route: 048
  16. ALOSENN [Concomitant]
     Indication: HEREDITARY NEUROPATHIC AMYLOIDOSIS
     Dosage: 1 G, 1X/DAY
     Route: 048
     Dates: start: 20130326
  17. COCARL [Concomitant]
     Active Substance: ACETAMINOPHEN
     Indication: HEREDITARY NEUROPATHIC AMYLOIDOSIS
     Dosage: 200 MG, AS NEEDED
     Route: 048
     Dates: start: 20120302
  18. KLARICID [Concomitant]
     Active Substance: CLARITHROMYCIN
     Indication: PROPHYLAXIS
     Dosage: 200 MG, 1X/DAY
     Route: 048
     Dates: start: 20130127
  19. NICO [Concomitant]
     Indication: HEREDITARY NEUROPATHIC AMYLOIDOSIS
     Dosage: 200 MG, 3X/DAY
     Route: 048
  20. SALOBEL [Concomitant]
     Active Substance: ALLOPURINOL
     Indication: GOUT
     Dosage: 100 MG, 1X/DAY
     Route: 048
     Dates: start: 20120312

REACTIONS (1)
  - Sudden death [Fatal]

NARRATIVE: CASE EVENT DATE: 20131210
